FAERS Safety Report 8265592-3 (Version None)
Quarter: 2012Q2

REPORT INFORMATION
  Report Type: 
  Country: None (occurrence: None)
  Receive Date: 20120406
  Receipt Date: 20120323
  Transmission Date: 20120825
  Serious: Yes (Other)
  Sender: FDA-Public Use
  Company Number: ES-WATSON-2012-05618

PATIENT
  Sex: Male

DRUGS (3)
  1. ASPIRIN [Concomitant]
     Indication: ARRHYTHMIA
     Dosage: UNK
     Route: 065
  2. DIGOXIN [Concomitant]
     Indication: ARRHYTHMIA
     Dosage: UNK
     Route: 065
  3. RAPAFLO [Suspect]
     Indication: BENIGN PROSTATIC HYPERPLASIA
     Dosage: UNK
     Route: 048
     Dates: start: 20120310

REACTIONS (1)
  - HYPERTENSION [None]
